FAERS Safety Report 4685249-5 (Version None)
Quarter: 2005Q2

REPORT INFORMATION
  Report Type: 
  Country: None (occurrence: None)
  Receive Date: 20050608
  Receipt Date: 20050527
  Transmission Date: 20051028
  Serious: Yes (Other)
  Sender: FDA-Public Use
  Company Number: JP-SANOFI-SYNTHELABO-F01200500822

PATIENT
  Age: 62 Year
  Sex: Male
  Weight: 80 kg

DRUGS (7)
  1. OXALIPLATIN [Suspect]
     Indication: COLON CANCER
     Route: 042
     Dates: start: 20050511, end: 20050511
  2. FLUOROURACIL [Suspect]
     Dosage: 680 MG IV BOLUS AND 1000 MG IV 22 HOURS CONTINUOUS INFUSION, Q2W
     Route: 042
     Dates: start: 20050511, end: 20050512
  3. CALCIUM LEVOFOLINATE [Suspect]
     Route: 042
     Dates: start: 20050511, end: 20050512
  4. TEGAFUR URACIL [Concomitant]
     Dates: start: 19960501, end: 20001201
  5. DOXIFLURIDINE [Concomitant]
     Dates: start: 20021201, end: 20040201
  6. TEGAFUR-GIMERACIL-OTERACIL POTASSIUM [Concomitant]
     Dates: start: 20040201, end: 20041001
  7. IRINOTECAN HCL [Concomitant]
     Indication: COLON CANCER
     Dates: start: 20041001, end: 20050401

REACTIONS (1)
  - ANGINA PECTORIS [None]
